FAERS Safety Report 5937125-5 (Version None)
Quarter: 2008Q4

REPORT INFORMATION
  Report Type: 
  Country: None (occurrence: None)
  Receive Date: 20081031
  Receipt Date: 20081022
  Transmission Date: 20090506
  Serious: Yes (Hospitalization)
  Sender: FDA-Public Use
  Company Number: PHHY2008ES23482

PATIENT
  Age: 77 Year
  Sex: Female

DRUGS (3)
  1. EXJADE [Suspect]
     Indication: IRON OVERLOAD
     Dosage: 1000 MG, QD
     Route: 048
     Dates: start: 20080917, end: 20080927
  2. AMERIDE [Concomitant]
  3. LENALIDOMIDE [Concomitant]

REACTIONS (10)
  - BRONCHOSPASM [None]
  - HAEMOGLOBIN DECREASED [None]
  - HYPOTENSION [None]
  - NASOPHARYNGITIS [None]
  - PHARYNGEAL OEDEMA [None]
  - PYREXIA [None]
  - RASH ERYTHEMATOUS [None]
  - RASH GENERALISED [None]
  - SKIN HAEMORRHAGE [None]
  - THROMBOCYTOPENIA [None]
